FAERS Safety Report 21175777 (Version 1)
Quarter: 2022Q3

REPORT INFORMATION
  Report Type: Report from Study
  Country: US (occurrence: US)
  Receive Date: 20220805
  Receipt Date: 20220805
  Transmission Date: 20221026
  Serious: No
  Sender: FDA-Public Use
  Company Number: US-NOVARTISTESTPH-NVSC2022US176746

PATIENT
  Age: 64 Year

DRUGS (1)
  1. ENTRESTO [Suspect]
     Active Substance: SACUBITRIL\VALSARTAN
     Indication: Cardiac failure congestive
     Dosage: 100 MG, BID (49/51 MG)
     Route: 048
     Dates: start: 2019

REACTIONS (3)
  - COVID-19 [Unknown]
  - Cough [Unknown]
  - Somnolence [Unknown]

NARRATIVE: CASE EVENT DATE: 20220701
